FAERS Safety Report 8454120-5 (Version None)
Quarter: 2012Q2

REPORT INFORMATION
  Report Type: 
  Country: None (occurrence: None)
  Receive Date: 20120620
  Receipt Date: 20120618
  Transmission Date: 20120825
  Serious: No
  Sender: FDA-Public Use
  Company Number: US-PFIZER INC-2012146955

PATIENT
  Sex: Male

DRUGS (3)
  1. NAPROXEN (ALEVE) [Concomitant]
     Indication: ARTHRITIS
     Dosage: UNK
  2. EFFEXOR XR [Suspect]
     Indication: DEPRESSION
     Dosage: UNK, 1X/DAY
     Route: 048
     Dates: end: 20111001
  3. ZOLOFT [Suspect]
     Indication: DEPRESSION
     Dosage: UNK, 1X/DAY

REACTIONS (2)
  - DEPRESSED MOOD [None]
  - HYPOTHYROIDISM [None]
